FAERS Safety Report 10516382 (Version 1)
Quarter: 2014Q4

REPORT INFORMATION
  Report Type: Report from Study
  Country: GB (occurrence: GB)
  Receive Date: 20141014
  Receipt Date: 20141014
  Transmission Date: 20150528
  Serious: Yes (Hospitalization)
  Sender: FDA-Public Use
  Company Number: GB-MYLANLABS-2014M1006919

PATIENT

DRUGS (5)
  1. TIOTROPIUM [Concomitant]
     Active Substance: TIOTROPIUM
     Indication: PRODUCT USED FOR UNKNOWN INDICATION
     Dosage: UNK
     Dates: start: 201407, end: 20140910
  2. PACLITAXEL. [Suspect]
     Active Substance: PACLITAXEL
     Indication: TRANSITIONAL CELL CARCINOMA
     Dosage: 156 MG, WE
     Route: 042
     Dates: start: 20140807, end: 20140908
  3. AMLODIPINE [Concomitant]
     Active Substance: AMLODIPINE BESYLATE
     Indication: PRODUCT USED FOR UNKNOWN INDICATION
     Dosage: UNK
     Dates: start: 20140811, end: 20140910
  4. SALBUTAMOL [Concomitant]
     Active Substance: ALBUTEROL
     Indication: PRODUCT USED FOR UNKNOWN INDICATION
     Dosage: UNK
     Dates: start: 201407, end: 20140910
  5. ATENOLOL. [Concomitant]
     Active Substance: ATENOLOL
     Indication: PRODUCT USED FOR UNKNOWN INDICATION
     Dosage: UNK
     Dates: start: 200507, end: 20140811

REACTIONS (1)
  - Photosensitivity reaction [Recovering/Resolving]

NARRATIVE: CASE EVENT DATE: 20140827
